FAERS Safety Report 21137288 (Version 1)
Quarter: 2022Q3

REPORT INFORMATION
  Report Type: Spontaneous
  Country: DE (occurrence: DE)
  Receive Date: 20220727
  Receipt Date: 20220727
  Transmission Date: 20221027
  Serious: Yes (Death, Life-Threatening, Hospitalization, Disabling, Other)
  Sender: FDA-Public Use
  Company Number: None

PATIENT
  Age: 63 Year
  Sex: Female
  Weight: 70 kg

DRUGS (8)
  1. METAMIZOLE [Suspect]
     Active Substance: METAMIZOLE
     Indication: Osteoporosis
     Dosage: DOSAGE FORM: ^FTA^LONG-TERM MEDICATION
     Route: 065
  2. ASPIRIN [Suspect]
     Active Substance: ASPIRIN
     Indication: Product used for unknown indication
     Dosage: 100 MG, QD (1X1LONG-TERM MEDICATION)
     Route: 048
  3. HEXAMIDINE DIISETHIONATE [Suspect]
     Active Substance: HEXAMIDINE DIISETHIONATE
     Indication: Nasopharyngitis
     Dosage: 1 PUFF 4 TIMES DAILY-EVERY 6 HOURS- ACCORDING TO THE PACKAGE LEAFLET
     Route: 065
     Dates: start: 20220511, end: 20220515
  4. HEXAMIDINE DIISETHIONATE [Suspect]
     Active Substance: HEXAMIDINE DIISETHIONATE
     Indication: Tonsillitis
  5. HEXAMIDINE DIISETHIONATE [Suspect]
     Active Substance: HEXAMIDINE DIISETHIONATE
     Indication: Oropharyngeal pain
  6. EZETIMIB SANDOZ [Concomitant]
     Indication: Blood cholesterol increased
     Dosage: ^DJ^ AS DOSAGELONG-TERM MEDICATION
     Route: 048
  7. RAMIPRIL [Concomitant]
     Active Substance: RAMIPRIL
     Indication: Coronary artery disease
     Dosage: ^DJ^ AS DOSAGELONG-TERM MEDICATION
     Route: 048
  8. PANTOPRAZOLE SODIUM [Concomitant]
     Active Substance: PANTOPRAZOLE SODIUM
     Indication: Prophylaxis
     Dosage: ^DJ^ AS DOSAGELONG-TERM MEDICATION
     Route: 048

REACTIONS (5)
  - Anaphylactic shock [Fatal]
  - Coma [Not Recovered/Not Resolved]
  - Pharyngeal swelling [Not Recovered/Not Resolved]
  - Dyspnoea [Not Recovered/Not Resolved]
  - Brain injury [Not Recovered/Not Resolved]

NARRATIVE: CASE EVENT DATE: 20220515
